FAERS Safety Report 6602581-6 (Version None)
Quarter: 2010Q1

REPORT INFORMATION
  Report Type: 
  Country: None (occurrence: None)
  Receive Date: 20100225
  Receipt Date: 20100218
  Transmission Date: 20100710
  Serious: Yes (Hospitalization, Other)
  Sender: FDA-Public Use
  Company Number: US-MERCK-0708USA00151

PATIENT
  Age: 75 Year
  Sex: Female
  Weight: 66 kg

DRUGS (6)
  1. FOSAMAX [Suspect]
     Indication: OSTEOPOROSIS
     Route: 048
     Dates: start: 20031015, end: 20060601
  2. FOSAMAX [Suspect]
     Indication: BONE DENSITY DECREASED
     Route: 048
     Dates: start: 20031015, end: 20060601
  3. CHOLESTEROL [Concomitant]
     Route: 065
  4. [THERAPY UNSPECIFIED] [Concomitant]
     Route: 065
  5. VASOTEC [Concomitant]
     Route: 048
     Dates: start: 19930101, end: 20030101
  6. VASOTEC [Concomitant]
     Route: 065
     Dates: start: 20040101

REACTIONS (26)
  - ADENOMYOSIS [None]
  - ADVERSE DRUG REACTION [None]
  - ANAEMIA [None]
  - CERVICITIS [None]
  - CYSTOCELE [None]
  - FALL [None]
  - FUNGAL INFECTION [None]
  - GLOSSODYNIA [None]
  - HAEMATOCRIT DECREASED [None]
  - HAEMOGLOBIN DECREASED [None]
  - HYDRONEPHROSIS [None]
  - HYPERKERATOSIS [None]
  - HYPOTHYROIDISM [None]
  - JOINT INJURY [None]
  - METAPLASIA [None]
  - ORAL TORUS [None]
  - OSTEOARTHRITIS [None]
  - OSTEONECROSIS [None]
  - PELVIC FLOOR MUSCLE WEAKNESS [None]
  - RECTOCELE [None]
  - RENAL FAILURE [None]
  - RENAL FAILURE CHRONIC [None]
  - SKIN IRRITATION [None]
  - SPEECH DISORDER [None]
  - UTERINE PROLAPSE [None]
  - VAGINAL PROLAPSE [None]
